FAERS Safety Report 10788300 (Version 3)
Quarter: 2015Q1

REPORT INFORMATION
  Report Type: Spontaneous
  Country: JP (occurrence: JP)
  Receive Date: 20150212
  Receipt Date: 20150327
  Transmission Date: 20150721
  Serious: Yes (Other)
  Sender: FDA-Public Use
  Company Number: JP-GE HEALTHCARE MEDICAL DIAGNOSTICS-OMPQ-PR-1502S-0100

PATIENT
  Age: 14 Year
  Sex: Female
  Weight: 54 kg

DRUGS (5)
  1. COLONEL [Concomitant]
     Active Substance: CALCIUM POLYCARBOPHIL
     Indication: ABDOMINAL PAIN
     Dates: start: 20150119, end: 20150219
  2. OMNIPAQUE [Suspect]
     Active Substance: IOHEXOL
     Indication: DIAGNOSTIC PROCEDURE
  3. OMNIPAQUE [Suspect]
     Active Substance: IOHEXOL
     Indication: ABDOMINAL PAIN
  4. ASVERIN (TIPEPIDINE HIBENZATE) [Concomitant]
     Active Substance: TIPEPIDINE HIBENZATE
     Indication: COUGH
     Dates: start: 20150127, end: 20150203
  5. OMNIPAQUE [Suspect]
     Active Substance: IOHEXOL
     Indication: IRRITABLE BOWEL SYNDROME
     Route: 065
     Dates: start: 20150203, end: 20150203

REACTIONS (3)
  - Anaphylactic reaction [Recovered/Resolved]
  - Oropharyngeal discomfort [Recovered/Resolved]
  - Conjunctival hyperaemia [Recovered/Resolved]

NARRATIVE: CASE EVENT DATE: 20150203
